FAERS Safety Report 5481239-3 (Version None)
Quarter: 2007Q4

REPORT INFORMATION
  Report Type: 
  Country: None (occurrence: None)
  Receive Date: 20071010
  Receipt Date: 20070927
  Transmission Date: 20080405
  Serious: Yes (Hospitalization)
  Sender: FDA-Public Use
  Company Number: CH-PURDUE-DEU_2007_0003689

PATIENT
  Age: 43 Year
  Sex: Female

DRUGS (14)
  1. MST MUNDIPHARMA [Suspect]
     Indication: PAIN IN EXTREMITY
     Dosage: 240 MG, TID
     Route: 048
     Dates: start: 20070501
  2. CELLCEPT [Concomitant]
  3. CHLORAL HYDRATE [Concomitant]
  4. BACLOFEN [Concomitant]
  5. LYRICA [Concomitant]
  6. NEXIUM [Concomitant]
  7. PREDNISONE [Concomitant]
  8. RIVOTRIL [Suspect]
     Indication: PAIN IN EXTREMITY
     Dosage: .5 UNK, UNK
     Route: 048
  9. TRACLEER [Concomitant]
  10. TRANXILIUM [Suspect]
     Indication: DRUG USE FOR UNKNOWN INDICATION
     Dosage: 20 UNK, UNK
     Route: 048
  11. TRYPTIZOL [Concomitant]
  12. AVONEX [Concomitant]
  13. ASPIRIN [Concomitant]
  14. FOLIC ACID [Concomitant]

REACTIONS (6)
  - CIRCUMSTANCE OR INFORMATION CAPABLE OF LEADING TO MEDICATION ERROR [None]
  - COMA [None]
  - DRUG INTERACTION [None]
  - MEDICATION ERROR [None]
  - OVERDOSE [None]
  - TREATMENT NONCOMPLIANCE [None]
